FAERS Safety Report 14508775 (Version 1)
Quarter: 2018Q1

REPORT INFORMATION
  Report Type: Report from Study
  Country: US (occurrence: US)
  Receive Date: 20180209
  Receipt Date: 20180209
  Transmission Date: 20180509
  Serious: Yes (Hospitalization)
  Sender: FDA-Public Use
  Company Number: US-BIOGEN-2018BI00521706

PATIENT
  Sex: Female

DRUGS (1)
  1. AVONEX [Suspect]
     Active Substance: INTERFERON BETA-1A
     Indication: MULTIPLE SCLEROSIS
     Route: 065

REACTIONS (6)
  - Upper limb fracture [Unknown]
  - Pain in extremity [Unknown]
  - Back disorder [Unknown]
  - Loss of control of legs [Unknown]
  - Cardiac contusion [Unknown]
  - Fall [Recovered/Resolved]
